FAERS Safety Report 24292802 (Version 1)
Quarter: 2024Q3

REPORT INFORMATION
  Report Type: Spontaneous
  Country: US (occurrence: None)
  Receive Date: 20240906
  Receipt Date: 20240906
  Transmission Date: 20241017
  Serious: No
  Sender: DOMPE FARMACEUTICI
  Company Number: US-FARMAPROD-202308-202310-3109

PATIENT
  Sex: Male

DRUGS (9)
  1. OXERVATE [Suspect]
     Active Substance: CENEGERMIN-BKBJ
     Indication: Neurotrophic keratopathy
     Route: 047
     Dates: start: 20230906
  2. ARTIFICIAL TEARS [Concomitant]
  3. DUREZOL [Concomitant]
     Active Substance: DIFLUPREDNATE
  4. GARLIC [Concomitant]
     Active Substance: GARLIC
  5. HERBALS\TURMERIC [Concomitant]
     Active Substance: HERBALS\TURMERIC
  6. FISH OIL [Concomitant]
     Active Substance: FISH OIL
     Dosage: 100-160 MG
  7. VITAMIN A [Concomitant]
     Active Substance: VITAMIN A
  8. LUTEIN [Concomitant]
     Active Substance: LUTEIN
  9. LEXAPRO [Concomitant]
     Active Substance: ESCITALOPRAM OXALATE

REACTIONS (2)
  - Photophobia [Unknown]
  - Vision blurred [Unknown]
